FAERS Safety Report 9449696 (Version 4)
Quarter: 2015Q2

REPORT INFORMATION
  Report Type: Report from Study
  Country: US (occurrence: US)
  Receive Date: 20130809
  Receipt Date: 20150402
  Transmission Date: 20150821
  Serious: Yes (Hospitalization)
  Sender: FDA-Public Use
  Company Number: US-ROCHE-1258296

PATIENT
  Sex: Female

DRUGS (34)
  1. PREDNISONE. [Concomitant]
     Active Substance: PREDNISONE
     Indication: INFLAMMATION
  2. OXCARBAZEPINE. [Concomitant]
     Active Substance: OXCARBAZEPINE
     Indication: PAIN MANAGEMENT
     Route: 065
  3. RITUXAN [Suspect]
     Active Substance: RITUXIMAB
     Indication: POLYNEUROPATHY
     Dosage: INJECTION THEN 825MG IV #1 INJ REF 1.
     Route: 042
     Dates: start: 2012
  4. RESTASIS [Concomitant]
     Active Substance: CYCLOSPORINE
     Dosage: EMU 1 DROP OU Q12H
     Route: 065
  5. COLACE [Concomitant]
     Active Substance: DOCUSATE SODIUM
     Dosage: #30 CAP
     Route: 048
     Dates: start: 20121112
  6. VITAMIN D3 [Concomitant]
     Active Substance: CHOLECALCIFEROL
     Dosage: UNIT- 4000 IU PO DAILY
     Route: 048
     Dates: start: 20120215
  7. CELEXA (UNITED STATES) [Concomitant]
     Route: 048
     Dates: start: 20120124
  8. PREDNISONE. [Concomitant]
     Active Substance: PREDNISONE
     Indication: NEURALGIA
  9. RITUXAN [Suspect]
     Active Substance: RITUXIMAB
     Indication: RHEUMATOID ARTHRITIS
     Route: 042
     Dates: start: 20150331
  10. MONISTAT [Concomitant]
     Active Substance: MICONAZOLE NITRATE
     Dosage: SUPPS-VAG SUP 200MG PV HS 3 DAYS
     Route: 065
     Dates: start: 20130704
  11. CLOTRIMAZOLE. [Concomitant]
     Active Substance: CLOTRIMAZOLE
     Dosage: TRO 1 TABLET PO 5X/D
     Route: 048
  12. ALBUTEROL. [Concomitant]
     Active Substance: ALBUTEROL
     Dosage: 3 ML AMPUL. NEB 1 NEB HHN QID #120 NEB
     Route: 065
  13. OXYCODONE [Concomitant]
     Active Substance: OXYCODONE
     Dosage: TAB CR 10MG BIDP
     Route: 048
     Dates: start: 20130531
  14. GLUCOSAMINE SULFATE [Concomitant]
     Active Substance: GLUCOSAMINE SULFATE
     Route: 048
     Dates: start: 20121112
  15. SOLIFENACIN SUCCINATE [Concomitant]
     Active Substance: SOLIFENACIN SUCCINATE
     Route: 048
  16. RITALIN [Concomitant]
     Active Substance: METHYLPHENIDATE HYDROCHLORIDE
     Dosage: TWICE A DAY
     Route: 048
  17. BENZONATATE. [Concomitant]
     Active Substance: BENZONATATE
     Dosage: THRICE A DAY #6 CAPSULE
     Route: 048
  18. ALBUTEROL SULFATE. [Concomitant]
     Active Substance: ALBUTEROL SULFATE
     Dosage: HFA-AER 2 PUFFS INH PRN #1 INHALER
     Route: 065
     Dates: start: 20130328
  19. SINGULAIR [Concomitant]
     Active Substance: MONTELUKAST SODIUM
  20. RITUXAN [Suspect]
     Active Substance: RITUXIMAB
     Indication: SJOGREN^S SYNDROME
  21. ALPHA LIPOIC ACID [Concomitant]
     Active Substance: .ALPHA.-LIPOIC ACID
     Route: 048
  22. CALCIUM CARBONATE. [Concomitant]
     Active Substance: CALCIUM CARBONATE
     Route: 048
     Dates: start: 20121112
  23. OMEGA 3 FATTY ACIDS [Concomitant]
     Active Substance: OMEGA-3 FATTY ACIDS
     Route: 048
  24. VITAMIN C [Concomitant]
     Active Substance: ASCORBIC ACID
     Route: 048
  25. RITUXAN [Suspect]
     Active Substance: RITUXIMAB
     Indication: AUTONOMIC NEUROPATHY
     Route: 042
  26. BUDESONIDE. [Concomitant]
     Active Substance: BUDESONIDE
     Dosage: 0.25MG /2ML INHA 1 NEB INHBI
     Route: 065
  27. ZOLPIDEM TARTRATE. [Concomitant]
     Active Substance: ZOLPIDEM TARTRATE
     Dosage: QHS
     Route: 048
     Dates: start: 20121112
  28. CYMBALTA [Concomitant]
     Active Substance: DULOXETINE HYDROCHLORIDE
     Route: 065
  29. OMEPRAZOLE. [Concomitant]
     Active Substance: OMEPRAZOLE
     Route: 065
  30. TRAMADOL HCL [Concomitant]
     Active Substance: TRAMADOL HYDROCHLORIDE
     Dosage: TBMP. 24HR 1-2 TAB PO DAILY
     Route: 048
     Dates: start: 20130416
  31. FLUTICASONE PROPIONATE. [Concomitant]
     Active Substance: FLUTICASONE PROPIONATE
     Dosage: MCG- 120 PUFFS/INHALER PUFF 1 PUFF INH BID #10.6GM
     Route: 065
     Dates: start: 20130328
  32. OXYCONTIN [Concomitant]
     Active Substance: OXYCODONE HYDROCHLORIDE
     Indication: NEURALGIA
  33. PREDNISONE. [Concomitant]
     Active Substance: PREDNISONE
     Indication: RHEUMATOID ARTHRITIS
     Route: 065
     Dates: start: 201410
  34. ALBUTEROL SULFATE. [Concomitant]
     Active Substance: ALBUTEROL SULFATE
     Dosage: NEB 1 VIAL NEB Q4H #1 BOX
     Route: 065
     Dates: start: 20130425

REACTIONS (9)
  - Urinary incontinence [Unknown]
  - Pollakiuria [Unknown]
  - Sleep disorder [Unknown]
  - Balance disorder [Unknown]
  - Abdominal discomfort [Unknown]
  - Respiratory distress [Unknown]
  - Muscular weakness [Unknown]
  - Sensory disturbance [Unknown]
  - Pain [Unknown]
